FAERS Safety Report 19833282 (Version 1)
Quarter: 2021Q3

REPORT INFORMATION
  Report Type: Spontaneous
  Country: CN (occurrence: CN)
  Receive Date: 20210915
  Receipt Date: 20210915
  Transmission Date: 20211014
  Serious: Yes (Other)
  Sender: FDA-Public Use
  Company Number: CN-SA-2021SA303325

PATIENT
  Age: 54 Year
  Sex: Male
  Weight: 64 kg

DRUGS (10)
  1. FLUOROURACIL. [Suspect]
     Active Substance: FLUOROURACIL
     Indication: METASTASES TO LYMPH NODES
     Dosage: 2.5 G, TOTAL
     Route: 042
     Dates: start: 20210828, end: 20210828
  2. FLUOROURACIL. [Suspect]
     Active Substance: FLUOROURACIL
     Indication: HEPATIC CANCER METASTATIC
  3. ELOXATIN [Suspect]
     Active Substance: OXALIPLATIN
     Indication: METASTASES TO LYMPH NODES
  4. GLUCOSE [Concomitant]
     Active Substance: DEXTROSE
     Indication: VEHICLE SOLUTION USE
     Dosage: 50 ML, TOTAL
     Route: 042
     Dates: start: 20210828, end: 20210828
  5. MAGNESIUM ISOGLYCYRRHIZINATE [Concomitant]
     Active Substance: MAGNESIUM ISOGLYCYRRHIZINATE
     Indication: HEPATOBILIARY DISORDER PROPHYLAXIS
     Dosage: UNK
     Route: 041
     Dates: start: 20210830
  6. ELOXATIN [Suspect]
     Active Substance: OXALIPLATIN
     Indication: HEPATIC CANCER METASTATIC
     Dosage: 150 MG, TOTAL
     Route: 042
     Dates: start: 20210828, end: 20210828
  7. DIAMMONIUM GLYCYRRHIZINATE [Concomitant]
     Active Substance: HERBALS\DIAMMONIUM GLYCYRRHIZINATE
     Indication: HEPATOBILIARY DISORDER PROPHYLAXIS
     Dosage: UNK
     Route: 048
  8. SODIUM CHLORIDE. [Concomitant]
     Active Substance: SODIUM CHLORIDE
     Indication: VEHICLE SOLUTION USE
     Dosage: 20 ML, TOTAL
     Route: 042
     Dates: start: 20210828, end: 20210828
  9. GLUTATHIONE [Concomitant]
     Active Substance: GLUTATHIONE
     Indication: HEPATOBILIARY DISORDER PROPHYLAXIS
     Dosage: UNK
     Route: 041
     Dates: start: 20210830
  10. BICYCLOL [Concomitant]
     Active Substance: BICYCLOL
     Indication: HEPATOBILIARY DISORDER PROPHYLAXIS
     Dosage: UNK
     Route: 048

REACTIONS (2)
  - Product use in unapproved indication [Unknown]
  - Hepatic function abnormal [Unknown]

NARRATIVE: CASE EVENT DATE: 20210830
